FAERS Safety Report 4394081-1 (Version None)
Quarter: 2004Q3

REPORT INFORMATION
  Report Type: 
  Country: None (occurrence: None)
  Receive Date: 20040708
  Receipt Date: 20040708
  Transmission Date: 20050211
  Serious: Yes (Hospitalization)
  Sender: FDA-Public Use
  Company Number: None

PATIENT
  Age: 52 Year
  Sex: Male
  Weight: 98.4306 kg

DRUGS (1)
  1. SILDENAFIL [Suspect]
     Indication: CARDIAC FAILURE CONGESTIVE
     Dosage: 25 MG TID

REACTIONS (2)
  - CARDIAC FAILURE [None]
  - CONDITION AGGRAVATED [None]
